FAERS Safety Report 8313572-1 (Version None)
Quarter: 2012Q2

REPORT INFORMATION
  Report Type: 
  Country: None (occurrence: None)
  Receive Date: 20120426
  Receipt Date: 20120419
  Transmission Date: 20120825
  Serious: Yes (Hospitalization, Other)
  Sender: FDA-Public Use
  Company Number: US-TEVA-334262USA

PATIENT
  Sex: Female

DRUGS (5)
  1. EFFEINT (PRASUGREL) [Concomitant]
  2. ENALAPRIL MALEATE [Suspect]
  3. PANTOPRAZOLE [Suspect]
  4. METOPROLOL TARTRATE [Suspect]
  5. LANSOPRAZOLE [Concomitant]

REACTIONS (6)
  - MYOCARDIAL INFARCTION [None]
  - HEAD DISCOMFORT [None]
  - BALANCE DISORDER [None]
  - GAIT DISTURBANCE [None]
  - HAEMORRHAGE [None]
  - FEELING ABNORMAL [None]
